FAERS Safety Report 9075553 (Version 1)
Quarter: 2013Q1

REPORT INFORMATION
  Report Type: Report from Study
  Country: US (occurrence: US)
  Receive Date: 20130129
  Receipt Date: 20130129
  Transmission Date: 20140127
  Serious: No
  Sender: FDA-Public Use
  Company Number: US-ABBOTT-12P-163-0921552-00

PATIENT
  Age: 52 Year
  Sex: Female

DRUGS (11)
  1. HUMIRA 40 MG/0.8 ML PEN [Suspect]
     Indication: ANKYLOSING SPONDYLITIS
     Dates: start: 20120320
  2. VOLTAREN [Concomitant]
     Indication: PAIN
  3. METOPROLOL [Concomitant]
     Indication: HYPERTENSION
     Dosage: 25MGX 1/2 TABLET X 2 TIMES A DAY=25MG
  4. AVAPRO [Concomitant]
     Indication: HYPERTENSION
     Dosage: DAILY
  5. VESICARE [Concomitant]
     Indication: POLLAKIURIA
     Dosage: DAILY
  6. PRESCRIPTION VITAMIN D [Concomitant]
     Indication: PRODUCT USED FOR UNKNOWN INDICATION
  7. OTC VITAMIN D [Concomitant]
     Indication: PRODUCT USED FOR UNKNOWN INDICATION
     Dosage: ON OTHER DAYS
  8. PRILOSEC [Concomitant]
     Indication: GASTRITIS PROPHYLAXIS
  9. MAGNESIUM [Concomitant]
     Indication: PRODUCT USED FOR UNKNOWN INDICATION
  10. VITAMIN C [Concomitant]
     Indication: PRODUCT USED FOR UNKNOWN INDICATION
  11. CO Q-10 [Concomitant]
     Indication: PRODUCT USED FOR UNKNOWN INDICATION
     Dosage: DAILY

REACTIONS (1)
  - Injection site haemorrhage [Recovered/Resolved]
